FAERS Safety Report 13103308 (Version 2)
Quarter: 2017Q1

REPORT INFORMATION
  Report Type: Report from Study
  Country: DE (occurrence: DE)
  Receive Date: 20170110
  Receipt Date: 20170214
  Transmission Date: 20170428
  Serious: Yes (Other)
  Sender: FDA-Public Use
  Company Number: DE-ROCHE-1877291

PATIENT
  Age: 62 Year
  Sex: Female

DRUGS (6)
  1. BLINDED OLAPARIB [Suspect]
     Active Substance: OLAPARIB
     Route: 065
     Dates: start: 20161229
  2. TWYNSTA [Concomitant]
     Active Substance: AMLODIPINE BESYLATE\TELMISARTAN
     Dosage: 4015
     Route: 048
  3. BLINDED OLAPARIB [Suspect]
     Active Substance: OLAPARIB
     Indication: CERVIX CARCINOMA
     Dosage: LAST DOSE PRIOR TO EVENT ON 20/DEC/2016
     Route: 065
     Dates: start: 20161018, end: 20161222
  4. ARCOXIA [Concomitant]
     Active Substance: ETORICOXIB
     Route: 048
  5. BEVACIZUMAB [Suspect]
     Active Substance: BEVACIZUMAB
     Indication: CERVIX CARCINOMA
     Dosage: LAST DOSE PRIOR TO EVENT ON 20/DEC/2016
     Route: 065
     Dates: start: 20161018
  6. FERROSANOL [Concomitant]
     Active Substance: FERROUS GLUCONATE
     Dosage: 100
     Route: 048

REACTIONS (1)
  - Femoral artery dissection [Not Recovered/Not Resolved]

NARRATIVE: CASE EVENT DATE: 20161221
